FAERS Safety Report 8059183-7 (Version None)
Quarter: 2012Q1

REPORT INFORMATION
  Report Type: 
  Country: None (occurrence: None)
  Receive Date: 20120112
  Receipt Date: 20120106
  Transmission Date: 20120608
  Serious: Yes (Other)
  Sender: FDA-Public Use
  Company Number: GER/UKI/12/0022580

PATIENT
  Age: 85 Year
  Sex: Male

DRUGS (7)
  1. ASPIRIN [Concomitant]
  2. LISINOPRIL [Concomitant]
  3. QUININE SULPHATE (QUININE SULPHATE) [Concomitant]
  4. FINASTERIDE [Suspect]
     Indication: PRODUCT USED FOR UNKNOWN INDICATION
     Dosage: 5 MG, 1 IN 1 D, ORAL
     Route: 048
  5. BISOPROLOL FUMARATE [Concomitant]
  6. ACETAMINOPHEN [Concomitant]
  7. LANSOPRAZOLE [Concomitant]

REACTIONS (1)
  - CEREBROVASCULAR ACCIDENT [None]
